FAERS Safety Report 4331188-9 (Version None)
Quarter: 2004Q1

REPORT INFORMATION
  Report Type: 
  Country: None (occurrence: None)
  Receive Date: 20040331
  Receipt Date: 20040316
  Transmission Date: 20041129
  Serious: Yes (Hospitalization)
  Sender: FDA-Public Use
  Company Number: GBS040314617

PATIENT
  Age: 16 Year
  Sex: Female

DRUGS (2)
  1. FLUOXETINE [Suspect]
     Dates: start: 20040206
  2. QUETIAPINE [Concomitant]

REACTIONS (2)
  - PAIN IN EXTREMITY [None]
  - PARALYSIS [None]
